FAERS Safety Report 4980744-3 (Version None)
Quarter: 2006Q2

REPORT INFORMATION
  Report Type: 
  Country: None (occurrence: None)
  Receive Date: 20060424
  Receipt Date: 20060411
  Transmission Date: 20061013
  Serious: Yes (Life-Threatening, Hospitalization, Disabling, Other)
  Sender: FDA-Public Use
  Company Number: US-MERCK-0604USA01782

PATIENT
  Age: 67 Year
  Sex: Male

DRUGS (5)
  1. EMEND [Suspect]
     Indication: PROPHYLAXIS OF NAUSEA AND VOMITING
     Route: 048
     Dates: start: 20040407, end: 20040407
  2. EMEND [Suspect]
     Route: 048
     Dates: start: 20040408, end: 20040409
  3. ALIMTA [Concomitant]
     Indication: PERITONEAL MESOTHELIOMA MALIGNANT
     Route: 065
     Dates: start: 20040407, end: 20040407
  4. CISPLATIN [Concomitant]
     Indication: PERITONEAL MESOTHELIOMA MALIGNANT
     Route: 065
     Dates: start: 20040407, end: 20040407
  5. ALOXI [Concomitant]
     Indication: PROPHYLAXIS OF NAUSEA AND VOMITING
     Route: 065
     Dates: start: 20040407, end: 20040407

REACTIONS (3)
  - CONVULSION [None]
  - DEPRESSED LEVEL OF CONSCIOUSNESS [None]
  - HYPONATRAEMIA [None]
